FAERS Safety Report 8130320-9 (Version None)
Quarter: 2012Q1

REPORT INFORMATION
  Report Type: 
  Country: None (occurrence: None)
  Receive Date: 20120210
  Receipt Date: 20120206
  Transmission Date: 20120608
  Serious: Yes (Other)
  Sender: FDA-Public Use
  Company Number: PHHY2012NL010001

PATIENT
  Sex: Male

DRUGS (3)
  1. ZOMETA [Suspect]
     Indication: PROSTATE CANCER METASTATIC
     Dosage: 4 MG/100 ML, 1X PER 56 DAYS
     Dates: start: 20100402
  2. ZOMETA [Suspect]
     Dosage: 4 MG/100 ML, 1X PER 56 DAYS
     Dates: start: 20111222
  3. ZOMETA [Suspect]
     Dosage: 4 MG/100 ML, 1X PER 56 DAYS
     Dates: start: 20120206

REACTIONS (2)
  - TRANSIENT ISCHAEMIC ATTACK [None]
  - PARAESTHESIA [None]
